FAERS Safety Report 12377766 (Version 2)
Quarter: 2016Q2

REPORT INFORMATION
  Report Type: Report from Study
  Country: US (occurrence: US)
  Receive Date: 20160517
  Receipt Date: 20160608
  Transmission Date: 20160815
  Serious: Yes (Death, Other)
  Sender: FDA-Public Use
  Company Number: US-009507513-1605USA008144

PATIENT
  Age: 78 Year
  Sex: Male

DRUGS (1)
  1. THERAPY UNSPECIFIED [Suspect]
     Active Substance: UNSPECIFIED INGREDIENT
     Dosage: UNK

REACTIONS (2)
  - Drug prescribing error [Unknown]
  - Death [Fatal]

NARRATIVE: CASE EVENT DATE: 20160512
